FAERS Safety Report 7297965-X (Version None)
Quarter: 2011Q1

REPORT INFORMATION
  Report Type: 
  Country: None (occurrence: None)
  Receive Date: 20110217
  Receipt Date: 20110209
  Transmission Date: 20110831
  Serious: Yes (Other)
  Sender: FDA-Public Use
  Company Number: US-US-EMD SERONO, INC.-7036938

PATIENT
  Sex: Female
  Weight: 73 kg

DRUGS (3)
  1. BACLOFEN [Concomitant]
     Indication: MUSCLE SPASTICITY
  2. REBIF [Suspect]
     Indication: MULTIPLE SCLEROSIS
     Dates: start: 20100313, end: 20101101
  3. CYMBALTA [Concomitant]
     Indication: AFFECTIVE DISORDER

REACTIONS (2)
  - BREAST CANCER STAGE I [None]
  - HYPOAESTHESIA [None]
